FAERS Safety Report 4606748-8 (Version None)
Quarter: 2005Q1

REPORT INFORMATION
  Report Type: 
  Country: None (occurrence: None)
  Receive Date: 20050314
  Receipt Date: 20050304
  Transmission Date: 20050727
  Serious: Yes (Death, Hospitalization)
  Sender: FDA-Public Use
  Company Number: PHRM2005FR00960

PATIENT
  Age: 70 Year
  Sex: Female

DRUGS (6)
  1. NOCTAMID [Concomitant]
     Dosage: 2 MG, QD
     Route: 048
  2. OMEPRAZOLE [Concomitant]
     Dosage: 20 MG DAILY
     Route: 048
  3. TERCIAN [Concomitant]
     Dosage: 20 MG DAILY
     Route: 048
  4. LYSANXIA [Concomitant]
     Dosage: 20 MG DAILY
     Route: 048
  5. EFFEXOR [Concomitant]
     Dosage: 37.5 MG PER DAY
     Route: 048
  6. GLEEVEC [Suspect]
     Dosage: 400 MG DAILY
     Route: 048

REACTIONS (4)
  - ADENOCARCINOMA [None]
  - ASCITES [None]
  - DYSPNOEA [None]
  - PLEURAL EFFUSION [None]
